FAERS Safety Report 18161271 (Version 1)
Quarter: 2020Q3

REPORT INFORMATION
  Report Type: Spontaneous
  Country: US (occurrence: US)
  Receive Date: 20200817
  Receipt Date: 20200817
  Transmission Date: 20201103
  Serious: No
  Sender: FDA-Public Use
  Company Number: None

PATIENT
  Sex: Female
  Weight: 64.8 kg

DRUGS (6)
  1. VITAMIN C [Concomitant]
     Active Substance: ASCORBIC ACID
  2. FISH OIL [Concomitant]
     Active Substance: FISH OIL
  3. VITAMIN D [Concomitant]
     Active Substance: VITAMIN D NOS
  4. CALCIUM [Concomitant]
     Active Substance: CALCIUM
  5. ETONOGESTREL/ETHINYL ESTRADIOL [Suspect]
     Active Substance: ETHINYL ESTRADIOL\ETONOGESTREL
     Indication: CONTRACEPTION
     Dosage: ?          QUANTITY:1 RING;OTHER FREQUENCY:ONCE EVERY MONTH;?
     Route: 067
     Dates: start: 20200522, end: 20200817
  6. BIRTH CONTROL RING [Concomitant]

REACTIONS (7)
  - Vaginal haemorrhage [None]
  - Menometrorrhagia [None]
  - Mood swings [None]
  - Product substitution issue [None]
  - Muscle spasms [None]
  - Anxiety [None]
  - Lethargy [None]
